FAERS Safety Report 9085484 (Version 2)
Quarter: 2013Q1

REPORT INFORMATION
  Report Type: Spontaneous
  Country: US (occurrence: US)
  Receive Date: 20130129
  Receipt Date: 20130226
  Transmission Date: 20140127
  Serious: Yes (Other)
  Sender: FDA-Public Use
  Company Number: PHEH2013US001960

PATIENT
  Sex: Male

DRUGS (4)
  1. AMLODIPINE BESILATE,BENAZEPRIL HYDROCHLORIDE [Suspect]
     Indication: BLOOD PRESSURE ABNORMAL
     Dosage: 1 DF (5 MG AMLO /20MG BENZ), QD
     Route: 048
  2. VITAMIN C [Concomitant]
  3. VITAMIN D [Concomitant]
  4. MAGNESIUM CITRATE [Concomitant]

REACTIONS (3)
  - Blood pressure increased [Unknown]
  - Weight fluctuation [Unknown]
  - Drug ineffective [Unknown]
